FAERS Safety Report 24241238 (Version 1)
Quarter: 2024Q3

REPORT INFORMATION
  Report Type: Spontaneous
  Country: CH (occurrence: CH)
  Receive Date: 20240823
  Receipt Date: 20240823
  Transmission Date: 20241017
  Serious: Yes (Life-Threatening, Hospitalization)
  Sender: CSL BEHRING
  Company Number: None

PATIENT
  Age: 17 Year
  Sex: Female

DRUGS (7)
  1. ALBUMIN HUMAN [Suspect]
     Active Substance: ALBUMIN HUMAN
     Indication: Product used for unknown indication
     Dosage: UNK DF
     Route: 065
     Dates: start: 20240719, end: 20240719
  2. PROGRAF [Concomitant]
     Active Substance: TACROLIMUS
     Dosage: DF
     Route: 048
  3. PROGRAF [Concomitant]
     Active Substance: TACROLIMUS
     Route: 048
  4. PREDNISONE [Concomitant]
     Active Substance: PREDNISONE
     Route: 048
  5. CELLCEPT [Concomitant]
     Active Substance: MYCOPHENOLATE MOFETIL
     Route: 048
  6. BACTRIM [Concomitant]
     Active Substance: SULFAMETHOXAZOLE\TRIMETHOPRIM
     Dosage: (0.5 {DF})
     Route: 048
  7. PRAVASTATIN [Concomitant]
     Active Substance: PRAVASTATIN
     Route: 048

REACTIONS (2)
  - Syncope [Recovered/Resolved]
  - Abdominal pain [Recovered/Resolved]

NARRATIVE: CASE EVENT DATE: 20240719
